FAERS Safety Report 13438580 (Version 2)
Quarter: 2017Q2

REPORT INFORMATION
  Report Type: Spontaneous
  Country: US (occurrence: AR)
  Receive Date: 20170412
  Receipt Date: 20170424
  Transmission Date: 20170830
  Serious: Yes (Other)
  Sender: FDA-Public Use
  Company Number: US-SUNOVION-2017SUN001558

PATIENT
  Age: 58 Year
  Sex: Female

DRUGS (1)
  1. INDACATEROL [Suspect]
     Active Substance: INDACATEROL
     Indication: CHRONIC OBSTRUCTIVE PULMONARY DISEASE
     Dosage: 1 DF, QD
     Route: 065
     Dates: start: 20170312, end: 20170331

REACTIONS (12)
  - General physical health deterioration [Not Recovered/Not Resolved]
  - Eye swelling [Recovering/Resolving]
  - Swelling face [Not Recovered/Not Resolved]
  - Urticaria [Recovered/Resolved]
  - Eyelid disorder [Not Recovered/Not Resolved]
  - Eyelid oedema [Recovering/Resolving]
  - Irritability [Not Recovered/Not Resolved]
  - Lacrimation increased [Recovering/Resolving]
  - Vision blurred [Recovering/Resolving]
  - Eye pain [Recovered/Resolved]
  - Eye disorder [Not Recovered/Not Resolved]
  - Cough [Unknown]

NARRATIVE: CASE EVENT DATE: 20170312
